FAERS Safety Report 5787515-9 (Version None)
Quarter: 2008Q2

REPORT INFORMATION
  Report Type: 
  Country: None (occurrence: None)
  Receive Date: 20080625
  Receipt Date: 20071023
  Transmission Date: 20081010
  Serious: No
  Sender: FDA-Public Use
  Company Number: US-ASTRAZENECA-2007UW24673

PATIENT
  Age: 51 Year
  Sex: Female
  Weight: 136.1 kg

DRUGS (11)
  1. PULMICORT-100 [Suspect]
     Indication: ASTHMA
     Route: 055
     Dates: start: 20071001
  2. ADVAIR DISKUS 100/50 [Concomitant]
     Dosage: 500/50
  3. PREDNISONE [Concomitant]
     Route: 048
  4. ALBUTEROL [Concomitant]
  5. SINGULAIR [Concomitant]
     Route: 048
  6. INSULIN [Concomitant]
  7. SYNTHROID [Concomitant]
  8. LIPITOR [Concomitant]
     Route: 048
  9. ZETIA [Concomitant]
     Route: 048
  10. FLONASE [Concomitant]
  11. SALINE NASAL SPRAY [Concomitant]
     Route: 045

REACTIONS (1)
  - RHINITIS [None]
